FAERS Safety Report 8460647-2 (Version None)
Quarter: 2012Q2

REPORT INFORMATION
  Report Type: 
  Country: None (occurrence: None)
  Receive Date: 20120622
  Receipt Date: 20120618
  Transmission Date: 20120825
  Serious: Yes (Hospitalization, Other)
  Sender: FDA-Public Use
  Company Number: US-ROCHE-1070347

PATIENT
  Sex: Male
  Weight: 63 kg

DRUGS (2)
  1. HYDROCORTISONE [Concomitant]
     Indication: CUSHING'S SYNDROME
     Dosage: 15 MG MORNING AND 7.5 MG EVENING
     Route: 048
  2. NUTROPIN AQ [Suspect]
     Indication: BODY HEIGHT BELOW NORMAL
     Route: 058
     Dates: start: 20120415, end: 20120510

REACTIONS (8)
  - LETHARGY [None]
  - ARTHRALGIA [None]
  - PYREXIA [None]
  - OEDEMA PERIPHERAL [None]
  - FATIGUE [None]
  - OEDEMA [None]
  - NASOPHARYNGITIS [None]
  - WEIGHT INCREASED [None]
